FAERS Safety Report 16052681 (Version 2)
Quarter: 2019Q1

REPORT INFORMATION
  Report Type: Report from Study
  Country: US (occurrence: US)
  Receive Date: 20190308
  Receipt Date: 20190329
  Transmission Date: 20190418
  Serious: Yes (Hospitalization)
  Sender: FDA-Public Use
  Company Number: US-EISAI MEDICAL RESEARCH-EC-2019-053137

PATIENT
  Age: 77 Year
  Sex: Male
  Weight: 75.5 kg

DRUGS (26)
  1. LENVATINIB [Suspect]
     Active Substance: LENVATINIB
     Indication: NEOPLASM
     Route: 048
     Dates: start: 20181213, end: 20190102
  2. ASCORBIC ACID. [Concomitant]
     Active Substance: ASCORBIC ACID
  3. OMGEA-3-DHA EPA-VITAMIN D3 [Concomitant]
  4. ZINC. [Concomitant]
     Active Substance: ZINC
  5. ELIQUIS [Concomitant]
     Active Substance: APIXABAN
  6. PEMBROLIZUMAB. [Suspect]
     Active Substance: PEMBROLIZUMAB
     Indication: NEOPLASM
     Route: 041
     Dates: start: 20181213, end: 201902
  7. LOSARTAN. [Concomitant]
     Active Substance: LOSARTAN
  8. NIFEDIPINE. [Concomitant]
     Active Substance: NIFEDIPINE
  9. AMLODIPINE [Concomitant]
     Active Substance: AMLODIPINE BESYLATE
  10. ZOLPIDEM [Concomitant]
     Active Substance: ZOLPIDEM\ZOLPIDEM TARTRATE
  11. METOPROLOL TARTRATE. [Concomitant]
     Active Substance: METOPROLOL TARTRATE
  12. ASPIRIN. [Concomitant]
     Active Substance: ASPIRIN
  13. PANTOPRAZOLE [Concomitant]
     Active Substance: PANTOPRAZOLE
  14. PSEUDOEPHEDRINE. [Concomitant]
     Active Substance: PSEUDOEPHEDRINE HYDROCHLORIDE
  15. TAMSULOSIN [Concomitant]
     Active Substance: TAMSULOSIN
  16. ALOE VERA [Concomitant]
     Active Substance: ALOE VERA LEAF
  17. LACTOBACILLUS ACIDOPHILUS [Concomitant]
     Active Substance: LACTOBACILLUS ACIDOPHILUS
  18. ATORVASTATIN [Concomitant]
     Active Substance: ATORVASTATIN
  19. MULTIVITAMIN [Concomitant]
     Active Substance: VITAMINS
  20. MUPIROCIN. [Concomitant]
     Active Substance: MUPIROCIN
  21. LEVOTHYROXINE. [Concomitant]
     Active Substance: LEVOTHYROXINE
  22. LENVATINIB [Suspect]
     Active Substance: LENVATINIB
     Route: 048
     Dates: start: 20190107, end: 20190306
  23. ISOSORBIDE MONONITRATE. [Concomitant]
     Active Substance: ISOSORBIDE MONONITRATE
  24. HYDROCODONE-ACETAMINOPHEN [Concomitant]
     Active Substance: ACETAMINOPHEN\HYDROCODONE
  25. ABH [Concomitant]
  26. MAGIC MOUTHWASH [Concomitant]
     Active Substance: DIPHENHYDRAMINE HYDROCHLORIDE\LIDOCAINE HYDROCHLORIDE\NYSTATIN

REACTIONS (4)
  - Acute myocardial infarction [Unknown]
  - Dysphagia [Recovered/Resolved]
  - Dyspnoea [Unknown]
  - Acute kidney injury [Recovered/Resolved]

NARRATIVE: CASE EVENT DATE: 20190306
